FAERS Safety Report 23274747 (Version 1)
Quarter: 2023Q4

REPORT INFORMATION
  Report Type: Spontaneous
  Country: US (occurrence: US)
  Receive Date: 20231208
  Receipt Date: 20231208
  Transmission Date: 20240109
  Serious: No
  Sender: FDA-Public Use
  Company Number: US-HETERO-HET2023US03434

PATIENT
  Sex: Female

DRUGS (1)
  1. ROSUVASTATIN [Suspect]
     Active Substance: ROSUVASTATIN
     Indication: Blood cholesterol abnormal
     Dosage: 5 MILLIGRAM, QD
     Route: 048
     Dates: start: 201905

REACTIONS (2)
  - Trigger finger [Not Recovered/Not Resolved]
  - Arthralgia [Recovering/Resolving]
